FAERS Safety Report 6550739-7 (Version None)
Quarter: 2010Q1

REPORT INFORMATION
  Report Type: 
  Country: None (occurrence: None)
  Receive Date: 20100125
  Receipt Date: 20100115
  Transmission Date: 20100710
  Serious: Yes (Hospitalization)
  Sender: FDA-Public Use
  Company Number: PHHY2010FR02446

PATIENT
  Age: 72 Year
  Sex: Female

DRUGS (4)
  1. RASILEZ [Suspect]
     Dosage: 150 MG, DAILY
     Route: 048
     Dates: start: 20091118
  2. LASILIX [Concomitant]
     Dosage: 20 MG DAILY
     Route: 065
  3. ALDACTONE [Concomitant]
     Dosage: 25 MG DAILY
     Route: 065
  4. APROVEL [Concomitant]
     Dosage: 300 MG DAILY
     Route: 065

REACTIONS (1)
  - RENAL FAILURE ACUTE [None]
